FAERS Safety Report 8954715 (Version 1)
Quarter: 2012Q4

REPORT INFORMATION
  Report Type: 
  Country: US (occurrence: US)
  Receive Date: 20121207
  Receipt Date: 20121207
  Transmission Date: 20130627
  Serious: No
  Sender: FDA-Public Use
  Company Number: US-ASTRAZENECA-2012SE88646

PATIENT
  Age: 70 Year
  Sex: Female
  Weight: 72.6 kg

DRUGS (5)
  1. SYMBICORT [Suspect]
     Indication: CHRONIC OBSTRUCTIVE PULMONARY DISEASE
     Dosage: 2 PUFFS BID
     Route: 055
  2. SPIRIVA [Concomitant]
     Indication: CHRONIC OBSTRUCTIVE PULMONARY DISEASE
  3. PROZAC [Concomitant]
     Indication: DEPRESSION
  4. FENTANYL [Concomitant]
     Indication: ARTHRALGIA
  5. AMLODIPINE [Concomitant]
     Indication: HYPERTENSION

REACTIONS (2)
  - Eye disorder [Unknown]
  - Dry mouth [Unknown]
